FAERS Safety Report 10057853 (Version 1)
Quarter: 2014Q2

REPORT INFORMATION
  Report Type: Spontaneous
  Country: GB (occurrence: None)
  Receive Date: 20140402
  Receipt Date: 20140402
  Transmission Date: 20141212
  Serious: Yes (Other)
  Sender: FDA-Public Use
  Company Number: AUR-APL-2014-03895

PATIENT
  Age: 6 Year
  Sex: Male
  Weight: 25.05 kg

DRUGS (1)
  1. MONTELUKAST [Suspect]
     Indication: PRODUCT USED FOR UNKNOWN INDICATION
     Dates: start: 20130731, end: 201312

REACTIONS (4)
  - Insomnia [None]
  - Psychomotor hyperactivity [None]
  - Abnormal behaviour [None]
  - Product substitution issue [None]
